FAERS Safety Report 17017066 (Version 2)
Quarter: 2019Q4

REPORT INFORMATION
  Report Type: Spontaneous
  Country: JP (occurrence: JP)
  Receive Date: 20191111
  Receipt Date: 20191216
  Transmission Date: 20200122
  Serious: Yes (Hospitalization, Other)
  Sender: FDA-Public Use
  Company Number: JP-ASTRAZENECA-2019SF25227

PATIENT
  Age: 68 Year
  Sex: Female
  Weight: 54 kg

DRUGS (11)
  1. NEXIUM [Suspect]
     Active Substance: ESOMEPRAZOLE MAGNESIUM
     Dosage: DOSE UNKNOWN
     Route: 048
     Dates: start: 20151113
  2. LOPERAMIDE HYDROCHLORIDE. [Concomitant]
     Active Substance: LOPERAMIDE HYDROCHLORIDE
     Dosage: DOSE UNKNOWN
     Route: 048
     Dates: start: 20150126
  3. TAGRISSO [Suspect]
     Active Substance: OSIMERTINIB
     Indication: NON-SMALL CELL LUNG CANCER
     Route: 048
     Dates: start: 20190525, end: 20190827
  4. PRAVASTATIN NA [Suspect]
     Active Substance: PRAVASTATIN SODIUM
     Dosage: DOSE UNKNOWN
     Route: 048
  5. AZULENE [Concomitant]
     Active Substance: AZULENE
     Dosage: DOSE UNKNOWN
     Route: 047
  6. MAGMITT [Concomitant]
     Active Substance: MAGNESIUM OXIDE
     Dosage: DOSE UNKNOWN
     Route: 048
     Dates: start: 20151114
  7. HEPARINOID [Concomitant]
     Active Substance: CHONDROITIN SULFATE (BOVINE)
     Dosage: DOSE UNKNOWN
     Route: 062
  8. RIZABEN [Concomitant]
     Active Substance: TRANILAST
     Dosage: DOSE UNKNOWN
     Route: 047
  9. CANDESARTAN. [Suspect]
     Active Substance: CANDESARTAN
     Dosage: DOSE UNKNOWN
     Route: 048
     Dates: start: 20171106
  10. PYRIDOXAL [Concomitant]
     Active Substance: PYRIDOXAL
     Dosage: DOSE UNKNOWN
     Route: 048
     Dates: start: 20160823
  11. HIRUDOID [Concomitant]
     Active Substance: GLYCOSAMINOGLYCANS
     Dosage: DOSE UNKNOWN
     Route: 062

REACTIONS (2)
  - Interstitial lung disease [Recovering/Resolving]
  - Malignant neoplasm progression [Unknown]

NARRATIVE: CASE EVENT DATE: 20190827
